FAERS Safety Report 7746447-7 (Version None)
Quarter: 2011Q3

REPORT INFORMATION
  Report Type: 
  Country: None (occurrence: None)
  Receive Date: 20110913
  Receipt Date: 20110906
  Transmission Date: 20111222
  Serious: Yes (Disabling)
  Sender: FDA-Public Use
  Company Number: JP-B.I. PHARMACEUTICALS,INC./RIDGEFIELD-2011-BP-21731NB

PATIENT
  Sex: Male
  Weight: 66 kg

DRUGS (16)
  1. PRADAXA [Suspect]
     Indication: PROPHYLAXIS
     Dosage: 300 MG
     Route: 048
  2. MUCOSTA [Concomitant]
     Dosage: 300 MG
     Route: 065
  3. ZOLOFT [Concomitant]
     Dosage: 50 MG
     Route: 065
  4. LENDORMIN D [Concomitant]
     Dosage: 0.25 MG
     Route: 065
  5. GLYBURIDE [Concomitant]
     Dosage: 2.5 MG
     Route: 065
  6. BASEN OD [Concomitant]
     Dosage: 0.6 MG
     Route: 065
  7. DIGOXIN [Concomitant]
     Dosage: 0.25 MG
     Route: 065
  8. HOCHU-EKKI-TO [Concomitant]
     Route: 065
  9. MINZAIN [Concomitant]
     Dosage: 0.25 MG
     Route: 065
  10. BUFFERIN [Concomitant]
     Dosage: 8 MG
     Route: 065
  11. URSO 250 [Concomitant]
     Dosage: 300 MG
     Route: 065
  12. VESICARE OD [Concomitant]
     Dosage: 2.5 MG
     Route: 065
  13. HALTHROW [Concomitant]
     Dosage: 0.2 MG
     Route: 065
  14. VESICARE [Concomitant]
     Dosage: 2.5 MG
     Route: 065
  15. TENORMIN [Concomitant]
     Dosage: 25 MG
     Route: 065
  16. CALCIUM LACTATE HYDRATE [Concomitant]
     Route: 065

REACTIONS (1)
  - RENAL IMPAIRMENT [None]
